FAERS Safety Report 6057257-3 (Version None)
Quarter: 2009Q1

REPORT INFORMATION
  Report Type: 
  Country: None (occurrence: None)
  Receive Date: 20090129
  Receipt Date: 20080606
  Transmission Date: 20090719
  Serious: No
  Sender: FDA-Public Use
  Company Number: A0732760A

PATIENT
  Age: 53 Year
  Sex: Male
  Weight: 52.7 kg

DRUGS (3)
  1. AZATHIOPRINE [Suspect]
     Indication: CROHN'S DISEASE
     Route: 048
     Dates: end: 20070801
  2. BUPROPION HCL [Suspect]
     Indication: DEPRESSION
     Dosage: 150MG PER DAY
     Route: 048
     Dates: start: 20071105, end: 20071105
  3. HUMIRA [Concomitant]
     Indication: CROHN'S DISEASE
     Dosage: 160MG TWO TIMES PER WEEK
     Route: 058
     Dates: start: 20070621

REACTIONS (3)
  - OESOPHAGEAL PAIN [None]
  - THROAT IRRITATION [None]
  - VOMITING [None]
